FAERS Safety Report 26182479 (Version 1)
Quarter: 2025Q4

REPORT INFORMATION
  Report Type: Report from Study
  Country: CO (occurrence: CO)
  Receive Date: 20251221
  Receipt Date: 20251221
  Transmission Date: 20260118
  Serious: Yes (Other)
  Sender: TAKEDA
  Company Number: CO-TAKEDA-2025TUS114921

PATIENT
  Age: 25 Year

DRUGS (3)
  1. COAGULATION FACTOR IX RECOMBINANT HUMAN [Suspect]
     Active Substance: COAGULATION FACTOR IX RECOMBINANT HUMAN
     Indication: Haemophilia B without inhibitors
     Dosage: 2000 INTERNATIONAL UNIT, 2/WEEK
  2. COAGULATION FACTOR IX RECOMBINANT HUMAN [Suspect]
     Active Substance: COAGULATION FACTOR IX RECOMBINANT HUMAN
     Indication: Arthropathy
     Dosage: 3500 INTERNATIONAL UNIT, Q12H
  3. COAGULATION FACTOR IX RECOMBINANT HUMAN [Suspect]
     Active Substance: COAGULATION FACTOR IX RECOMBINANT HUMAN
     Indication: Arthropathy

REACTIONS (2)
  - Haemarthrosis [Unknown]
  - Ecchymosis [Unknown]

NARRATIVE: CASE EVENT DATE: 20250929
